FAERS Safety Report 9732493 (Version 1)
Quarter: 2013Q4

REPORT INFORMATION
  Report Type: Spontaneous
  Country: US (occurrence: None)
  Receive Date: 20131204
  Receipt Date: 20131204
  Transmission Date: 20140711
  Serious: Yes (Other)
  Sender: FDA-Public Use
  Company Number: None

PATIENT
  Age: 73 Year
  Sex: Male
  Weight: 84.82 kg

DRUGS (1)
  1. LOSARTAN HCTZ [Suspect]
     Indication: HYPERTENSION
     Dosage: 1 TABLET PER DAY/ 24HRS.
     Dates: start: 20131106

REACTIONS (1)
  - Rash pruritic [None]
